FAERS Safety Report 4942958-8 (Version None)
Quarter: 2006Q1

REPORT INFORMATION
  Report Type: 
  Country: None (occurrence: None)
  Receive Date: 20060309
  Receipt Date: 20060307
  Transmission Date: 20060701
  Serious: Yes (Disabling)
  Sender: FDA-Public Use
  Company Number: TCI2005A04921

PATIENT
  Age: 76 Year
  Sex: Male

DRUGS (3)
  1. LEUPROLIDE ACETATE [Suspect]
     Indication: PROSTATE CANCER
     Dosage: 11.25 MG (11.25 G, 1 IN 12 WK)
     Route: 058
     Dates: start: 20050607
  2. CASODEX [Concomitant]
  3. MARZULENE S [Concomitant]

REACTIONS (5)
  - BLOOD POTASSIUM INCREASED [None]
  - HAEMATURIA [None]
  - PROTEINURIA [None]
  - RENAL IMPAIRMENT [None]
  - URINARY CASTS [None]
